FAERS Safety Report 6092182-3 (Version None)
Quarter: 2009Q1

REPORT INFORMATION
  Report Type: 
  Country: None (occurrence: None)
  Receive Date: 20090223
  Receipt Date: 20090223
  Transmission Date: 20090719
  Serious: Yes (Hospitalization)
  Sender: FDA-Public Use
  Company Number: None

PATIENT
  Sex: Male

DRUGS (6)
  1. REVLIMID [Suspect]
     Indication: PROSTATE CANCER
     Dosage: 25 MG PO QD PO FOR 21 DAYS FOLLOWED BY 7 DAYS OFF - ON HOLD
     Route: 048
     Dates: start: 20090129, end: 20090218
  2. LIPITOR [Concomitant]
  3. LUPRON [Concomitant]
  4. DITROPAN [Concomitant]
  5. ZOMETA [Concomitant]
  6. ASPIRIN [Concomitant]

REACTIONS (4)
  - ABDOMINAL PAIN UPPER [None]
  - DYSPNOEA [None]
  - LOCALISED OEDEMA [None]
  - PLEURAL EFFUSION [None]
